FAERS Safety Report 12839605 (Version 1)
Quarter: 2016Q4

REPORT INFORMATION
  Report Type: Spontaneous
  Country: US (occurrence: US)
  Receive Date: 20161011
  Receipt Date: 20161011
  Transmission Date: 20170207
  Serious: Yes (Hospitalization)
  Sender: FDA-Public Use
  Company Number: None

PATIENT
  Age: 18 Year
  Sex: Female
  Weight: 56.7 kg

DRUGS (1)
  1. FALMINA [Suspect]
     Active Substance: ETHINYL ESTRADIOL\LEVONORGESTREL
     Indication: MENSTRUAL DISORDER
     Route: 048

REACTIONS (3)
  - Pulmonary embolism [None]
  - Bronchitis [None]
  - Asthma [None]

NARRATIVE: CASE EVENT DATE: 20161009
